FAERS Safety Report 9707367 (Version 1)
Quarter: 2013Q4

REPORT INFORMATION
  Report Type: Spontaneous
  Country: US (occurrence: US)
  Receive Date: 20131125
  Receipt Date: 20131125
  Transmission Date: 20140711
  Serious: No
  Sender: FDA-Public Use
  Company Number: US-GLAXOSMITHKLINE-A1035732A

PATIENT
  Sex: Female

DRUGS (2)
  1. FLOVENT [Suspect]
     Indication: PROPHYLAXIS
     Route: 061
  2. UNSPECIFIED PAIN MEDICATION [Concomitant]
     Route: 062

REACTIONS (2)
  - Therapeutic response unexpected [Unknown]
  - Incorrect route of drug administration [Unknown]
